FAERS Safety Report 25266609 (Version 1)
Quarter: 2025Q2

REPORT INFORMATION
  Report Type: Spontaneous
  Country: FR (occurrence: FR)
  Receive Date: 20250505
  Receipt Date: 20250505
  Transmission Date: 20250717
  Serious: Yes (Hospitalization)
  Sender: NOVARTIS
  Company Number: None

PATIENT
  Age: 38 Year
  Sex: Female
  Weight: 80.5 kg

DRUGS (1)
  1. KESIMPTA [Suspect]
     Active Substance: OFATUMUMAB
     Indication: Multiple sclerosis
     Dosage: 20 MG, QW, (3 INJECTIONS AU TOTAL)
     Route: 058
     Dates: start: 20250224, end: 20250310

REACTIONS (1)
  - Autoimmune hepatitis [Recovering/Resolving]

NARRATIVE: CASE EVENT DATE: 20250411
